FAERS Safety Report 12224668 (Version 1)
Quarter: 2016Q1

REPORT INFORMATION
  Report Type: Other
  Country: CA (occurrence: CA)
  Receive Date: 20160331
  Receipt Date: 20160331
  Transmission Date: 20160526
  Serious: Yes (Other)
  Sender: FDA-Public Use
  Company Number: CA-APOTEX-2016AP007400

PATIENT
  Age: 37 Year
  Sex: Male

DRUGS (5)
  1. APO-FLUOXETINE [Concomitant]
     Active Substance: FLUOXETINE HYDROCHLORIDE
     Indication: PRODUCT USED FOR UNKNOWN INDICATION
     Route: 065
  2. SEROQUEL [Concomitant]
     Active Substance: QUETIAPINE FUMARATE
     Indication: PRODUCT USED FOR UNKNOWN INDICATION
     Route: 065
  3. APO-OLANZAPINE ODT [Suspect]
     Active Substance: OLANZAPINE
     Indication: PARANOID PERSONALITY DISORDER
     Dosage: 150 MG, QD
     Route: 065
  4. APO-OLANZAPINE ODT [Suspect]
     Active Substance: OLANZAPINE
     Indication: GENERALISED ANXIETY DISORDER
  5. APO-OLANZAPINE ODT [Suspect]
     Active Substance: OLANZAPINE
     Indication: DEPRESSION

REACTIONS (2)
  - Drug ineffective [Unknown]
  - Paranoia [Unknown]
